FAERS Safety Report 9265534 (Version 1)
Quarter: 2013Q2

REPORT INFORMATION
  Report Type: Spontaneous
  Country: US (occurrence: US)
  Receive Date: 20130501
  Receipt Date: 20130501
  Transmission Date: 20140414
  Serious: Yes (Hospitalization)
  Sender: FDA-Public Use
  Company Number: US-PFIZER INC-2013129924

PATIENT
  Age: 91 Year
  Sex: Male

DRUGS (10)
  1. DEXTROMETHORPHAN HBR [Suspect]
     Indication: NASOPHARYNGITIS
     Dosage: 30 MG, UNK
  2. ACETAMINOPHEN [Suspect]
     Indication: NASOPHARYNGITIS
     Dosage: 650 MG, UNK
  3. DOXYLAMINE [Suspect]
     Indication: NASOPHARYNGITIS
     Dosage: 12.5 MG, UNK
  4. AMLODIPINE [Concomitant]
     Dosage: 5 MG, 1X/DAY
  5. DOXAZOSIN [Concomitant]
     Dosage: 4 MG, 1X/DAY
  6. ALLOPURINOL [Concomitant]
     Dosage: 300 MG, 1X/DAY
  7. SIMVASTATIN [Concomitant]
     Dosage: 40 MG, 1X/DAY
  8. CLOPIDOGREL [Concomitant]
     Dosage: 75 MG, 1X/DAY
  9. ASA [Concomitant]
     Dosage: 81 MG, 1X/DAY
  10. OMEPRAZOLE [Concomitant]
     Dosage: 20 MG, 1X/DAY

REACTIONS (3)
  - Confusional state [Recovering/Resolving]
  - Abasia [Recovering/Resolving]
  - Incontinence [Recovering/Resolving]
